FAERS Safety Report 7385345-8 (Version None)
Quarter: 2011Q1

REPORT INFORMATION
  Report Type: 
  Country: None (occurrence: None)
  Receive Date: 20110330
  Receipt Date: 20100929
  Transmission Date: 20110831
  Serious: No
  Sender: FDA-Public Use
  Company Number: US-MYLANLABS-2010S1018034

PATIENT
  Age: 51 Year
  Sex: Male

DRUGS (1)
  1. EMSAM [Suspect]
     Route: 062

REACTIONS (1)
  - FALSE POSITIVE INVESTIGATION RESULT [None]
